FAERS Safety Report 7971395-7 (Version None)
Quarter: 2011Q4

REPORT INFORMATION
  Report Type: 
  Country: None (occurrence: None)
  Receive Date: 20111212
  Receipt Date: 20111201
  Transmission Date: 20120403
  Serious: Yes (Hospitalization, Disabling, Other)
  Sender: FDA-Public Use
  Company Number: US-MERCK-1110USA01114

PATIENT
  Age: 63 Year
  Sex: Female
  Weight: 90 kg

DRUGS (4)
  1. FOSAMAX [Suspect]
     Route: 048
  2. FOSAMAX [Suspect]
     Indication: OSTEOPENIA
     Route: 048
     Dates: start: 19980101, end: 20091003
  3. FOSAMAX [Suspect]
     Route: 048
  4. FOSAMAX [Suspect]
     Indication: OSTEOPOROSIS
     Route: 048
     Dates: start: 19980101, end: 20091003

REACTIONS (33)
  - NASOPHARYNGITIS [None]
  - TONSILLAR DISORDER [None]
  - MUSCULOSKELETAL PAIN [None]
  - STRESS FRACTURE [None]
  - VITAMIN D DEFICIENCY [None]
  - ANGIOPATHY [None]
  - VAGINAL INFECTION [None]
  - GASTROOESOPHAGEAL REFLUX DISEASE [None]
  - RECTOCELE [None]
  - GASTROINTESTINAL HAEMORRHAGE [None]
  - ARTHRITIS [None]
  - HYPOCALCAEMIA [None]
  - LOW TURNOVER OSTEOPATHY [None]
  - CYSTOCELE [None]
  - ANAEMIA POSTOPERATIVE [None]
  - URINARY TRACT INFECTION [None]
  - URINARY RETENTION [None]
  - RADIUS FRACTURE [None]
  - PEPTIC ULCER [None]
  - OSTEOARTHRITIS [None]
  - HYPERCHOLESTEROLAEMIA [None]
  - ANAEMIA [None]
  - OEDEMA PERIPHERAL [None]
  - FOOT DEFORMITY [None]
  - FALL [None]
  - CONSTIPATION [None]
  - ARTHRALGIA [None]
  - ADVERSE EVENT [None]
  - PROCEDURAL PAIN [None]
  - ROTATOR CUFF SYNDROME [None]
  - HERNIA [None]
  - UTEROVAGINAL PROLAPSE [None]
  - URINARY TRACT OBSTRUCTION [None]
